FAERS Safety Report 7115508-8 (Version None)
Quarter: 2010Q4

REPORT INFORMATION
  Report Type: 
  Country: None (occurrence: None)
  Receive Date: 20101122
  Receipt Date: 20101109
  Transmission Date: 20110411
  Serious: Yes (Hospitalization, Other)
  Sender: FDA-Public Use
  Company Number: PHHY2010KR75544

PATIENT
  Sex: Female

DRUGS (1)
  1. ACLASTA [Suspect]
     Indication: OSTEOPOROSIS
     Dosage: 5 MG
     Route: 042
     Dates: start: 20091028, end: 20101013

REACTIONS (7)
  - ACCIDENT [None]
  - CARTILAGE INJURY [None]
  - FRACTURE [None]
  - JOINT SWELLING [None]
  - PAIN [None]
  - POST-TRAUMATIC PAIN [None]
  - SURGERY [None]
